FAERS Safety Report 25042204 (Version 1)
Quarter: 2025Q1

REPORT INFORMATION
  Report Type: Spontaneous
  Country: IL (occurrence: IL)
  Receive Date: 20250305
  Receipt Date: 20250305
  Transmission Date: 20250409
  Serious: Yes (Other)
  Sender: TAKEDA
  Company Number: IL-TAKEDA-2025TUS022652

PATIENT
  Age: 72 Year
  Sex: Male

DRUGS (2)
  1. MARIBAVIR [Suspect]
     Active Substance: MARIBAVIR
     Indication: Product used for unknown indication
  2. FOSCARNET [Concomitant]
     Active Substance: FOSCARNET

REACTIONS (2)
  - Viral load increased [Unknown]
  - Drug effect less than expected [Unknown]
